FAERS Safety Report 7908081-5 (Version None)
Quarter: 2011Q4

REPORT INFORMATION
  Report Type: 
  Country: None (occurrence: None)
  Receive Date: 20111111
  Receipt Date: 20111101
  Transmission Date: 20120403
  Serious: Yes (Hospitalization)
  Sender: FDA-Public Use
  Company Number: US-BIOGENIDEC-2011BI041496

PATIENT
  Age: 53 Year
  Sex: Female

DRUGS (32)
  1. TYSABRI [Suspect]
     Indication: MULTIPLE SCLEROSIS
     Route: 042
     Dates: start: 20080520
  2. POLYETHYLENE GLYCOL [Concomitant]
     Route: 048
  3. SPIRONOLACTONE [Concomitant]
     Route: 048
  4. SYMBICORT [Concomitant]
     Route: 048
  5. KLONOPIN [Concomitant]
     Route: 048
  6. ACETAMINOPHEN [Concomitant]
     Indication: PAIN
     Route: 048
  7. FLONASE [Concomitant]
     Route: 045
  8. LEVOTHYROXINE SODIUM [Concomitant]
     Indication: HYPOTHYROIDISM
     Route: 048
  9. BETHANECHOL [Concomitant]
     Route: 048
  10. DEPAKOTE ER [Concomitant]
     Route: 048
  11. ACIPHEX [Concomitant]
     Indication: GASTROOESOPHAGEAL REFLUX DISEASE
     Route: 048
  12. POTASSIUM [Concomitant]
     Route: 048
  13. DULCOLAX [Concomitant]
     Indication: CONSTIPATION
     Route: 048
  14. PROVENTIL [Concomitant]
     Route: 055
  15. LIDOCAINE VISCOUS SOLUTION [Concomitant]
  16. COLACE [Concomitant]
     Route: 048
  17. PATADAY [Concomitant]
     Route: 047
  18. LACTASE [Concomitant]
     Route: 048
  19. NITROLINGUAL PUMPSPRAY [Concomitant]
  20. BENADRYL [Concomitant]
     Route: 048
  21. NYSTATIN [Concomitant]
  22. VICODIN [Concomitant]
     Route: 048
  23. VICODIN [Concomitant]
  24. HALDOL [Concomitant]
     Route: 048
  25. MELOXICAM [Concomitant]
     Route: 048
  26. CEPACOL [Concomitant]
     Indication: THROAT IRRITATION
  27. LOPERAMIDE HCL [Concomitant]
     Indication: DIARRHOEA
     Route: 048
  28. PAXIL [Concomitant]
     Route: 048
  29. COGENTIN [Concomitant]
     Route: 048
  30. ARICEPT [Concomitant]
     Indication: AMNESIA
     Route: 048
  31. TRIMETHOPRIM [Concomitant]
     Route: 048
  32. GUAIFENESIN [Concomitant]
     Indication: COUGH

REACTIONS (9)
  - MALAISE [None]
  - NIGHTMARE [None]
  - DEPRESSION [None]
  - MOOD SWINGS [None]
  - WEIGHT DECREASED [None]
  - VICTIM OF SEXUAL ABUSE [None]
  - INSOMNIA [None]
  - TREMOR [None]
  - ANXIETY [None]
